FAERS Safety Report 4596544-2 (Version None)
Quarter: 2005Q1

REPORT INFORMATION
  Report Type: 
  Country: None (occurrence: None)
  Receive Date: 20050228
  Receipt Date: 20050218
  Transmission Date: 20050727
  Serious: Yes (Life-Threatening, Hospitalization)
  Sender: FDA-Public Use
  Company Number: US014615

PATIENT
  Age: 37 Year
  Sex: Male

DRUGS (2)
  1. PROVIGIL [Suspect]
     Indication: MULTIPLE SCLEROSIS
     Dosage: 100 MG BID ORAL
     Route: 048
     Dates: start: 20031127, end: 20050116
  2. AVONEX [Concomitant]

REACTIONS (6)
  - AMNESIA [None]
  - CSF LYMPHOCYTE COUNT INCREASED [None]
  - CSF WHITE BLOOD CELL COUNT INCREASED [None]
  - INFECTION [None]
  - MULTIPLE SCLEROSIS RELAPSE [None]
  - STATUS EPILEPTICUS [None]
